FAERS Safety Report 5413546-4 (Version None)
Quarter: 2007Q3

REPORT INFORMATION
  Report Type: 
  Country: None (occurrence: None)
  Receive Date: 20070814
  Receipt Date: 20070808
  Transmission Date: 20080115
  Serious: Yes (Other)
  Sender: FDA-Public Use
  Company Number: DE-ABBOTT-07P-062-0377087-00

PATIENT
  Sex: Male

DRUGS (1)
  1. ERGENYL CHRONO TABLETS [Suspect]
     Indication: CONVULSION
     Route: 048
     Dates: start: 20070120, end: 20070303

REACTIONS (3)
  - COGNITIVE DISORDER [None]
  - PARANOIA [None]
  - TOXIC ENCEPHALOPATHY [None]
